FAERS Safety Report 5448087-1 (Version None)
Quarter: 2007Q3

REPORT INFORMATION
  Report Type: 
  Country: None (occurrence: None)
  Receive Date: 20070801
  Receipt Date: 20070403
  Transmission Date: 20080115
  Serious: No
  Sender: FDA-Public Use
  Company Number: 2007-US-000202

PATIENT
  Age: 2 Year
  Sex: Male
  Weight: 10.9 kg

DRUGS (3)
  1. INCRELEX [Suspect]
     Dosage: 13 UT, BID
     Dates: start: 20060501
  2. FLOVENT [Concomitant]
  3. ALBUTEROL [Concomitant]

REACTIONS (1)
  - DECREASED APPETITE [None]
